APPROVED DRUG PRODUCT: ESTROPIPATE
Active Ingredient: ESTROPIPATE
Strength: 3MG
Dosage Form/Route: TABLET;ORAL
Application: A040135 | Product #003
Applicant: BARR LABORATORIES INC
Approved: Nov 27, 1996 | RLD: No | RS: No | Type: DISCN